FAERS Safety Report 9559827 (Version 1)
Quarter: 2013Q3

REPORT INFORMATION
  Report Type: Spontaneous
  Country: US (occurrence: None)
  Receive Date: 20130924
  Receipt Date: 20130924
  Transmission Date: 20140515
  Serious: Yes (Other)
  Sender: FDA-Public Use
  Company Number: 2013P1019376

PATIENT
  Age: 65 Year
  Sex: Male
  Weight: 131.54 kg

DRUGS (7)
  1. ATIVAN [Suspect]
     Indication: DELIRIUM TREMENS
     Dates: start: 200706
  2. ATIVAN [Suspect]
     Dates: start: 200706
  3. UNSPECIFIED BLOOD PRESSURE MEDICINE [Concomitant]
  4. UNSPECIFIED PROSTATE MEDICATION [Concomitant]
  5. MORPHINE SULFATE [Concomitant]
  6. ASPIRIN [Concomitant]
  7. UNSPECIFIED VITAMINS [Concomitant]

REACTIONS (6)
  - Psychomotor hyperactivity [None]
  - Renal failure acute [None]
  - Pneumonia [None]
  - Cardiac failure congestive [None]
  - Myocardial infarction [None]
  - Arrhythmia [None]
